FAERS Safety Report 7866656-6 (Version None)
Quarter: 2011Q4

REPORT INFORMATION
  Report Type: 
  Country: None (occurrence: None)
  Receive Date: 20111028
  Receipt Date: 20110720
  Transmission Date: 20120403
  Serious: No
  Sender: FDA-Public Use
  Company Number: US-GLAXOSMITHKLINE-A0937481A

PATIENT
  Age: 87 Year
  Sex: Female

DRUGS (3)
  1. CALCIUM CARBONATE [Concomitant]
  2. ADVAIR DISKUS 100/50 [Suspect]
     Indication: DYSPNOEA
     Dosage: 1PUFF PER DAY
     Route: 055
     Dates: start: 20110501
  3. BRONCHIAL MEDICINE [Suspect]
     Dosage: 2DROP PER DAY
     Dates: start: 20110719

REACTIONS (6)
  - UPPER RESPIRATORY TRACT CONGESTION [None]
  - NAUSEA [None]
  - SNEEZING [None]
  - FEELING ABNORMAL [None]
  - DYSPHONIA [None]
  - THROAT IRRITATION [None]
